FAERS Safety Report 7450652-7 (Version None)
Quarter: 2011Q2

REPORT INFORMATION
  Report Type: 
  Country: None (occurrence: None)
  Receive Date: 20110422
  Receipt Date: 20110415
  Transmission Date: 20111010
  Serious: Yes (Other)
  Sender: FDA-Public Use
  Company Number: 1000020240

PATIENT
  Age: 40 Year
  Sex: Male
  Weight: 120 kg

DRUGS (6)
  1. SIMVASTATIN (SIMVASTATIN, SIMVASTATIN) (SIMVASTATIN, SIMVASTATIN) [Concomitant]
  2. PANADOL (PARACETAMOL) (PARACETAMOL) [Concomitant]
  3. LEXAPRO [Suspect]
     Dosage: 10 MG (10 MG,1 IN 1 D)
     Dates: start: 20100101, end: 20101201
  4. PERSAIC (PERSAIC) (PERSAIC) [Concomitant]
  5. CASSIA (CASSIA) (CASSIA) [Concomitant]
  6. ESCITALOPRAM [Suspect]

REACTIONS (4)
  - PERSONALITY CHANGE [None]
  - AGGRESSION [None]
  - SELF-INJURIOUS IDEATION [None]
  - WEIGHT INCREASED [None]
